FAERS Safety Report 10467625 (Version 1)
Quarter: 2014Q3

REPORT INFORMATION
  Report Type: Spontaneous
  Country: US (occurrence: US)
  Receive Date: 20140922
  Receipt Date: 20140922
  Transmission Date: 20150326
  Serious: Yes (Hospitalization)
  Sender: FDA-Public Use
  Company Number: US-GLAXOSMITHKLINE-A1089863A

PATIENT
  Age: 57 Year
  Sex: Female

DRUGS (15)
  1. BUMETANIDE. [Concomitant]
     Active Substance: BUMETANIDE
  2. HYDROCHLOROTHIAZIDE. [Concomitant]
     Active Substance: HYDROCHLOROTHIAZIDE
  3. LOVASTATIN. [Concomitant]
     Active Substance: LOVASTATIN
  4. GABAPENTIN. [Concomitant]
     Active Substance: GABAPENTIN
  5. ASPIRIN. [Concomitant]
     Active Substance: ASPIRIN
  6. LEVOTHYROXINE [Concomitant]
     Active Substance: LEVOTHYROXINE
  7. OXYCODONE [Concomitant]
     Active Substance: OXYCODONE
  8. CLOPIDOGREL [Concomitant]
     Active Substance: CLOPIDOGREL BISULFATE
  9. LOSARTAN [Concomitant]
     Active Substance: LOSARTAN
  10. DULOXETINE [Concomitant]
     Active Substance: DULOXETINE
  11. METOPROLOL [Concomitant]
     Active Substance: METOPROLOL
  12. LAMICTAL [Suspect]
     Active Substance: LAMOTRIGINE
     Indication: DEPRESSION
     Dosage: 200MG TWICE PER DAY
     Route: 048
     Dates: start: 2006
  13. LAMOTRIGINE. [Suspect]
     Active Substance: LAMOTRIGINE
     Indication: DEPRESSION
     Route: 048
     Dates: start: 201406
  14. FUROSEMIDE. [Concomitant]
     Active Substance: FUROSEMIDE
  15. POTASSIUM [Concomitant]
     Active Substance: POTASSIUM

REACTIONS (8)
  - Procedural pain [Not Recovered/Not Resolved]
  - Off label use [Unknown]
  - Stress fracture [Recovered/Resolved]
  - Malaise [Unknown]
  - Arthritis [Unknown]
  - Foot deformity [Unknown]
  - Arthralgia [Recovered/Resolved]
  - Gait disturbance [Unknown]

NARRATIVE: CASE EVENT DATE: 2006
